FAERS Safety Report 6902996-2 (Version None)
Quarter: 2010Q3

REPORT INFORMATION
  Report Type: 
  Country: None (occurrence: None)
  Receive Date: 20100803
  Receipt Date: 20080822
  Transmission Date: 20110219
  Serious: No
  Sender: FDA-Public Use
  Company Number: US-PFIZER INC-2008036413

PATIENT
  Sex: Female
  Weight: 70.4 kg

DRUGS (4)
  1. LYRICA [Suspect]
     Indication: NEURALGIA
     Route: 048
     Dates: start: 20080419
  2. LYRICA [Suspect]
     Indication: LUMBAR RADICULOPATHY
  3. VICODIN [Concomitant]
     Dates: start: 20080401
  4. TYLENOL [Concomitant]
     Dates: start: 20080401

REACTIONS (4)
  - COGNITIVE DISORDER [None]
  - DRUG INEFFECTIVE [None]
  - DRY MOUTH [None]
  - SOMNOLENCE [None]
